FAERS Safety Report 4371104-7 (Version None)
Quarter: 2004Q2

REPORT INFORMATION
  Report Type: 
  Country: None (occurrence: None)
  Receive Date: 20040601
  Receipt Date: 20040518
  Transmission Date: 20050107
  Serious: Yes (Life-Threatening, Hospitalization, Disabling, Other)
  Sender: FDA-Public Use
  Company Number: 2004027449

PATIENT
  Age: 72 Year
  Sex: Female

DRUGS (3)
  1. EPANUTIN SUSPENSION (PHENYTOIN SODIUM) [Suspect]
     Indication: EPILEPSY
     Dosage: 300 MG (300 MG, ONCE INTERVAL: DAILY) ORAL
     Route: 048
     Dates: start: 20031101, end: 20040513
  2. CITALOPRAM [Concomitant]
  3. ACETYLSALICYLIC ACID SRT [Concomitant]

REACTIONS (1)
  - APLASTIC ANAEMIA [None]
